FAERS Safety Report 5807347-2 (Version None)
Quarter: 2008Q3

REPORT INFORMATION
  Report Type: 
  Country: None (occurrence: None)
  Receive Date: 20080711
  Receipt Date: 20080630
  Transmission Date: 20090109
  Serious: Yes (Death)
  Sender: FDA-Public Use
  Company Number: US-WATSON-2008-03937

PATIENT
  Age: 26 Year
  Sex: Female

DRUGS (1)
  1. DEXAMETHASONE [Suspect]
     Indication: ADRENAL MASS
     Dosage: 2 MG, ORALLY EVERY 6 HOURS FOR 2 DAYS
     Route: 048

REACTIONS (1)
  - PHAEOCHROMOCYTOMA [None]
